FAERS Safety Report 9934178 (Version 2)
Quarter: 2014Q2

REPORT INFORMATION
  Report Type: Spontaneous
  Country: US (occurrence: US)
  Receive Date: 20140228
  Receipt Date: 20140428
  Transmission Date: 20141212
  Serious: No
  Sender: FDA-Public Use
  Company Number: US-ABBVIE-14P-163-1194133-00

PATIENT
  Sex: Male
  Weight: 97.61 kg

DRUGS (7)
  1. ANDROGEL [Suspect]
     Indication: BLOOD TESTOSTERONE DECREASED
     Route: 061
     Dates: start: 2012, end: 2013
  2. ANDROGEL [Suspect]
     Dates: start: 201312, end: 20140121
  3. ANDROGEL [Suspect]
     Indication: BLOOD TESTOSTERONE DECREASED
     Dates: start: 2010, end: 2012
  4. TESTOSTERONE [Suspect]
     Indication: BLOOD TESTOSTERONE DECREASED
     Route: 030
     Dates: start: 2013, end: 2013
  5. OMEPRAZOLE [Concomitant]
     Indication: GASTROOESOPHAGEAL REFLUX DISEASE
  6. FENOFIBRATE [Concomitant]
     Indication: BLOOD TRIGLYCERIDES INCREASED
  7. LOSARTAN [Concomitant]
     Indication: HYPERTENSION

REACTIONS (6)
  - Peau d^orange [Recovered/Resolved]
  - Erythema [Recovering/Resolving]
  - Pruritus [Recovering/Resolving]
  - Paraesthesia [Recovered/Resolved]
  - Blood pressure increased [Recovering/Resolving]
  - Erythema [Recovered/Resolved]
